FAERS Safety Report 4500253-5 (Version None)
Quarter: 2004Q4

REPORT INFORMATION
  Report Type: 
  Country: None (occurrence: None)
  Receive Date: 20041109
  Receipt Date: 20041029
  Transmission Date: 20050328
  Serious: Yes (Other)
  Sender: FDA-Public Use
  Company Number: 2004236668US

PATIENT
  Sex: Female
  Weight: 85.3 kg

DRUGS (6)
  1. CELECOXIB VS PLACEBO (CELECOXIB VS PLACEBO) CAPSULE [Suspect]
     Indication: BREAST NEOPLASM
     Dosage: 400 MG, BID, ORAL
     Route: 048
     Dates: start: 20040701
  2. EXEMESTANE [Suspect]
     Indication: BREAST NEOPLASM
     Dosage: 25 MG, QD, ORAL
     Route: 048
     Dates: start: 20040701
  3. PRAVACHOL [Suspect]
     Dosage: 40 MG, QD, ORAL
     Route: 048
  4. FERROUS SULFATE TAB [Concomitant]
  5. IMODIUM [Concomitant]
  6. LEGATRIN [Concomitant]

REACTIONS (2)
  - MUSCLE CRAMP [None]
  - PAIN IN EXTREMITY [None]
